FAERS Safety Report 7945019-9 (Version None)
Quarter: 2011Q4

REPORT INFORMATION
  Report Type: 
  Country: None (occurrence: None)
  Receive Date: 20111129
  Receipt Date: 20111123
  Transmission Date: 20120403
  Serious: Yes (Other)
  Sender: FDA-Public Use
  Company Number: PHHY2011RU92956

PATIENT
  Age: 64 Year
  Sex: Female

DRUGS (1)
  1. ZOLEDRONOC ACID [Suspect]
     Route: 042
     Dates: start: 20101015

REACTIONS (2)
  - PYELONEPHRITIS CHRONIC [None]
  - NEPHROLITHIASIS [None]
